FAERS Safety Report 20302184 (Version 1)
Quarter: 2022Q1

REPORT INFORMATION
  Report Type: Spontaneous
  Country: DE (occurrence: DE)
  Receive Date: 20220106
  Receipt Date: 20220106
  Transmission Date: 20220423
  Serious: Yes (Congenital Anomaly, Other)
  Sender: FDA-Public Use
  Company Number: DE-EMBRYOTOX-202104913-B

PATIENT
  Age: 1 Day
  Sex: Male
  Weight: 2.75 kg

DRUGS (1)
  1. OLANZAPINE [Suspect]
     Active Substance: OLANZAPINE
     Indication: Schizophrenia
     Dosage: 405 MILLIGRAM (405 [MG/4WK ])
     Route: 064
     Dates: start: 20200725, end: 20210506

REACTIONS (7)
  - Lipomeningocele [Unknown]
  - Tethered cord syndrome [Unknown]
  - Atrial septal defect [Recovered/Resolved]
  - Aortic valve incompetence [Unknown]
  - Spina bifida occulta [Unknown]
  - Small for dates baby [Unknown]
  - Foetal exposure during pregnancy [Unknown]

NARRATIVE: CASE EVENT DATE: 20210506
